FAERS Safety Report 5455255-1 (Version None)
Quarter: 2007Q3

REPORT INFORMATION
  Report Type: 
  Country: None (occurrence: None)
  Receive Date: 20070918
  Receipt Date: 20070828
  Transmission Date: 20080115
  Serious: No
  Sender: FDA-Public Use
  Company Number: US-JNJFOC-20070703317

PATIENT
  Sex: Male
  Weight: 50.35 kg

DRUGS (7)
  1. INVEGA [Suspect]
     Indication: ATTENTION DEFICIT/HYPERACTIVITY DISORDER
  2. INVEGA [Suspect]
     Indication: INTERMITTENT EXPLOSIVE DISORDER
  3. INVEGA [Suspect]
     Indication: OPPOSITIONAL DEFIANT DISORDER
  4. METHYLPHENIDATE HCL [Concomitant]
  5. STRATTERA [Concomitant]
  6. CLONIDINE [Concomitant]
  7. HYDROXYZINE [Concomitant]

REACTIONS (1)
  - PHOTOSENSITIVITY REACTION [None]
